FAERS Safety Report 8213077-2 (Version None)
Quarter: 2012Q1

REPORT INFORMATION
  Report Type: 
  Country: None (occurrence: None)
  Receive Date: 20120228
  Receipt Date: 20110729
  Transmission Date: 20120608
  Serious: Yes (Hospitalization, Other)
  Sender: FDA-Public Use
  Company Number: RB-30994-2011

PATIENT
  Sex: Female

DRUGS (9)
  1. LIBRIUM [Suspect]
     Indication: DRUG WITHDRAWAL SYNDROME
     Dates: start: 20110717, end: 20110718
  2. CLONIDINE [Concomitant]
  3. TEGRETOL [Concomitant]
  4. SEROQUEL [Concomitant]
  5. SUBOXONE 2 MG [Suspect]
     Indication: DRUG DEPENDENCE
     Dosage: (4 MG   SUBLINGUAL)
     Route: 060
     Dates: start: 20110718, end: 20110718
  6. OXYCODONE HCL [Suspect]
     Indication: PRODUCT USED FOR UNKNOWN INDICATION
     Dates: end: 20110717
  7. SYNTHROID [Concomitant]
  8. SINGULAIR [Concomitant]
  9. PHENOBARBITAL TAB [Suspect]
     Indication: DRUG WITHDRAWAL SYNDROME
     Dosage: (ORAL)
     Route: 048
     Dates: start: 20110717, end: 20110718

REACTIONS (1)
  - RESPIRATORY ARREST [None]
